FAERS Safety Report 9132934 (Version 1)
Quarter: 2013Q1

REPORT INFORMATION
  Report Type: Spontaneous
  Country: FR (occurrence: FR)
  Receive Date: 20130301
  Receipt Date: 20130301
  Transmission Date: 20140127
  Serious: Yes (Life-Threatening, Hospitalization, Other)
  Sender: FDA-Public Use
  Company Number: FR-PFIZER INC-2012306343

PATIENT
  Age: 70 Year
  Sex: Female
  Weight: 65 kg

DRUGS (5)
  1. METFORMIN HCL [Suspect]
     Indication: PRODUCT USED FOR UNKNOWN INDICATION
     Dosage: 3000 MG,1 D
     Route: 065
  2. MORPHINE [Suspect]
     Dosage: 10 MG, 4X/DAY
     Route: 058
  3. KETOPROFEN [Suspect]
     Indication: POSTOPERATIVE ANALGESIA
     Dosage: 100 MG, 3X/DAY
     Route: 042
  4. INDAPAMIDE [Suspect]
     Indication: HYPERTENSION
     Dosage: 2.5 MG,1 D
     Route: 065
  5. ACETAMINOPHEN [Suspect]
     Indication: POSTOPERATIVE ANALGESIA
     Dosage: 1000 MG, 4X/DAY
     Route: 042

REACTIONS (12)
  - Respiratory distress [Recovering/Resolving]
  - Renal failure acute [Recovering/Resolving]
  - Lactic acidosis [Recovering/Resolving]
  - Condition aggravated [Recovering/Resolving]
  - Hypotension [Recovering/Resolving]
  - Hypoglycaemia [Recovering/Resolving]
  - Hypothermia [Recovering/Resolving]
  - Tachycardia [Recovering/Resolving]
  - Oliguria [Recovering/Resolving]
  - Vomiting [Recovering/Resolving]
  - Toxicity to various agents [Recovering/Resolving]
  - Drug level increased [Recovering/Resolving]
